FAERS Safety Report 18397495 (Version 1)
Quarter: 2020Q4

REPORT INFORMATION
  Report Type: Spontaneous
  Country: US (occurrence: US)
  Receive Date: 20201019
  Receipt Date: 20201019
  Transmission Date: 20210114
  Serious: No
  Sender: FDA-Public Use
  Company Number: None

PATIENT
  Age: 64 Year
  Sex: Male

DRUGS (1)
  1. SUTENT [Suspect]
     Active Substance: SUNITINIB MALATE
     Indication: CHRONIC LEUKAEMIA
     Route: 048
     Dates: start: 20200806

REACTIONS (3)
  - Constipation [None]
  - Yellow skin [None]
  - Chromaturia [None]

NARRATIVE: CASE EVENT DATE: 20200930
